FAERS Safety Report 7957272-6 (Version None)
Quarter: 2011Q4

REPORT INFORMATION
  Report Type: 
  Country: None (occurrence: None)
  Receive Date: 20111130
  Receipt Date: 20111118
  Transmission Date: 20120403
  Serious: No
  Sender: FDA-Public Use
  Company Number: LEO-2011-00830

PATIENT
  Age: 36 Year
  Sex: Female

DRUGS (5)
  1. PROPRANOLOL [Concomitant]
  2. BETABLOCKER [Concomitant]
  3. ALPRAZOLAM [Concomitant]
  4. CERAZETTE (CEFALORIDINE) [Concomitant]
  5. INNOHEP [Suspect]
     Indication: FOOT FRACTURE
     Dosage: 4500 IU,
     Dates: start: 20110917, end: 20111005

REACTIONS (9)
  - HEPATIC STEATOSIS [None]
  - DIZZINESS [None]
  - OFF LABEL USE [None]
  - ASPARTATE AMINOTRANSFERASE INCREASED [None]
  - ALANINE AMINOTRANSFERASE INCREASED [None]
  - HEPATOTOXICITY [None]
  - NAUSEA [None]
  - HOT FLUSH [None]
  - DECREASED APPETITE [None]
